FAERS Safety Report 7256252-6 (Version None)
Quarter: 2011Q1

REPORT INFORMATION
  Report Type: 
  Country: None (occurrence: None)
  Receive Date: 20110129
  Receipt Date: 20100504
  Transmission Date: 20110831
  Serious: Yes (Hospitalization, Other)
  Sender: FDA-Public Use
  Company Number: US-ABBOTT-10P-163-0634804-00

PATIENT
  Sex: Female
  Weight: 108.96 kg

DRUGS (2)
  1. ALLEGRA [Concomitant]
     Indication: SINUS DISORDER
  2. HUMIRA [Suspect]
     Indication: PSORIASIS
     Dates: start: 20090508, end: 20100302

REACTIONS (4)
  - LYMPHADENOPATHY [None]
  - PRECANCEROUS SKIN LESION [None]
  - BLADDER CANCER [None]
  - NEPHROLITHIASIS [None]
